FAERS Safety Report 21719988 (Version 1)
Quarter: 2022Q4

REPORT INFORMATION
  Report Type: Spontaneous
  Country: US (occurrence: US)
  Receive Date: 20221213
  Receipt Date: 20221213
  Transmission Date: 20230113
  Serious: No
  Sender: FDA-Public Use
  Company Number: US-AUROBINDO-AUR-APL-2022-013190

PATIENT
  Age: 62 Year
  Sex: Female

DRUGS (29)
  1. CITALOPRAM [Suspect]
     Active Substance: CITALOPRAM HYDROBROMIDE
     Indication: Product used for unknown indication
     Dosage: UNK
     Route: 065
  2. AMIODARONE [Concomitant]
     Active Substance: AMIODARONE
     Indication: Cardiac disorder
     Dosage: 1 DOSAGE FORM, TWO TIMES A DAY (IN THE MORNING AND AT BEDTIME GIVE VIA G^TUBE)
     Route: 048
     Dates: start: 202201
  3. AMLODIPINE BESYLATE [Concomitant]
     Active Substance: AMLODIPINE BESYLATE
     Indication: Blood pressure measurement
     Dosage: 1 DOSAGE FORM (AT BEDTIME)
     Route: 065
     Dates: start: 201704
  4. BUDESONIDE [Concomitant]
     Active Substance: BUDESONIDE
     Indication: Chronic obstructive pulmonary disease
     Dosage: 2 MILLILITER, TWO TIMES A DAY
     Route: 048
     Dates: start: 202202
  5. CALCIUM [Interacting]
     Active Substance: CALCIUM
     Indication: Bone disorder
     Dosage: 1 DOSAGE FORM, DAILY
     Route: 065
     Dates: start: 201403
  6. CELECOXIB [Concomitant]
     Active Substance: CELECOXIB
     Indication: Arthralgia
     Dosage: 1 UNK, ONCE A DAY (AT BEDTIME)
     Route: 065
     Dates: start: 201410
  7. CLONAZEPAM [Concomitant]
     Active Substance: CLONAZEPAM
     Indication: Anxiety
     Dosage: 1 DOSAGE FORM, ONCE A DAY
     Route: 048
     Dates: start: 201605
  8. CLONIDINE [Concomitant]
     Active Substance: CLONIDINE
     Indication: Blood pressure systolic
     Dosage: 1 DOSAGE FORM (4 TIMES PER DAY AS NEEDEDR)
     Route: 048
     Dates: start: 202102
  9. DOCUSATE SODIUM [Concomitant]
     Active Substance: DOCUSATE SODIUM
     Indication: Constipation
     Dosage: 1 DOSAGE FORM, DAILY (AS NEEDED)
     Route: 048
     Dates: start: 202202
  10. FENOFIBRATE [Concomitant]
     Active Substance: FENOFIBRATE
     Indication: Blood triglycerides
     Dosage: 1 DOSAGE FORM, DAILY (AT BEDTIME)
     Route: 048
     Dates: start: 201810
  11. ALBUTEROL\IPRATROPIUM [Concomitant]
     Active Substance: ALBUTEROL\IPRATROPIUM
     Indication: Chronic obstructive pulmonary disease
     Dosage: UNK (1 VIAL IN NEBULIZER 4 TIMES DAILY)
     Route: 065
     Dates: start: 202002
  12. LISINOPRIL [Concomitant]
     Active Substance: LISINOPRIL
     Indication: Blood pressure measurement
     Dosage: 1 DOSAGE FORM, TWO TIMES A DAY
     Route: 065
     Dates: start: 201705
  13. LYRICA [Concomitant]
     Active Substance: PREGABALIN
     Indication: Neuralgia
     Dosage: 1 DOSAGE FORM, 3 TIMES A DAY
     Route: 048
     Dates: start: 20150515
  14. LYRICA [Concomitant]
     Active Substance: PREGABALIN
     Indication: Fibromyalgia
     Dosage: 1 DOSAGE FORM, 3 TIMES A DAY
     Route: 048
     Dates: start: 202111
  15. LYRICA [Concomitant]
     Active Substance: PREGABALIN
     Indication: Paraesthesia
  16. METFORMIN [Concomitant]
     Active Substance: METFORMIN HYDROCHLORIDE
     Indication: Product used for unknown indication
     Dosage: 1 DOSAGE FORM, TWO TIMES A DAY
     Route: 048
     Dates: start: 202111
  17. METOPROLOL TARTRATE [Concomitant]
     Active Substance: METOPROLOL TARTRATE
     Indication: Blood pressure measurement
     Dosage: 1 DOSAGE FORM, TWO TIMES A DAY
     Route: 065
     Dates: start: 201406
  18. METOPROLOL TARTRATE [Concomitant]
     Active Substance: METOPROLOL TARTRATE
     Indication: Heart rate
  19. ONDANSETRON [Concomitant]
     Active Substance: ONDANSETRON
     Indication: Nausea
     Dosage: 1 DOSAGE FORM, FOUR TIMES/DAY
     Route: 048
     Dates: start: 202110
  20. PROMETHAZINE [Concomitant]
     Active Substance: PROMETHAZINE HYDROCHLORIDE
     Indication: Nausea
     Dosage: UNK UNK, FOUR TIMES/DAY (1 /2-1 TABLET)
     Route: 048
     Dates: start: 202202
  21. PULMICORT TURBUHALER [Concomitant]
     Active Substance: BUDESONIDE
     Indication: Chronic obstructive pulmonary disease
     Dosage: 1 MILLIGRAM, 3 TIMES A DAY
     Route: 048
     Dates: start: 202102
  22. ROSUVASTATIN CALCIUM [Concomitant]
     Active Substance: ROSUVASTATIN CALCIUM
     Indication: Blood cholesterol
     Dosage: 1 DOSAGE FORM, ONCE A DAY (EVERY DAY AT BEDTIME)
     Route: 065
     Dates: start: 201702
  23. TIZANIDINE [Concomitant]
     Active Substance: TIZANIDINE
     Indication: Hypotonia
     Dosage: 1 DOSAGE FORM, 3 TIMES A DAY
     Route: 065
     Dates: start: 201807
  24. TRAMADOL [Concomitant]
     Active Substance: TRAMADOL
     Indication: Pain
     Dosage: 1 DOSAGE FORM, 3 TIMES A DAY
     Route: 048
     Dates: start: 201411
  25. TRAZODONE [Concomitant]
     Active Substance: TRAZODONE HYDROCHLORIDE
     Indication: Anxiety
     Dosage: 1 DOSAGE FORM, ONCE A DAY (DAILY ATBEDTIME)
     Route: 048
     Dates: start: 202202
  26. TRAZODONE [Concomitant]
     Active Substance: TRAZODONE HYDROCHLORIDE
     Indication: Depression
  27. TRESIBA [Concomitant]
     Active Substance: INSULIN DEGLUDEC
     Indication: Product used for unknown indication
     Dosage: UNK (10 UNITS SC DAILY)
     Route: 058
     Dates: start: 202203
  28. VITAMIN D3 [Concomitant]
     Active Substance: CHOLECALCIFEROL
     Indication: Bone disorder
     Dosage: 1 DOSAGE FORM, EVERY WEEK
     Route: 048
     Dates: start: 202111
  29. XOPENEX [Concomitant]
     Active Substance: LEVALBUTEROL HYDROCHLORIDE
     Indication: Dyspnoea
     Dosage: 3  (EVERY 4 HOURS AS NEEDED)
     Route: 065
     Dates: start: 201402

REACTIONS (1)
  - Tachycardia [Unknown]
